FAERS Safety Report 11751669 (Version 3)
Quarter: 2017Q1

REPORT INFORMATION
  Report Type: Spontaneous
  Country: US (occurrence: US)
  Receive Date: 20151118
  Receipt Date: 20170220
  Transmission Date: 20170428
  Serious: Yes (Hospitalization, Other)
  Sender: FDA-Public Use
  Company Number: US-ASTRAZENECA-2015SF10596

PATIENT
  Age: 45 Year
  Sex: Female
  Weight: 75.8 kg

DRUGS (29)
  1. CRESTOR [Suspect]
     Active Substance: ROSUVASTATIN CALCIUM
     Indication: BLOOD CHOLESTEROL INCREASED
     Dosage: DAILY
     Route: 048
     Dates: start: 201508, end: 201509
  2. KLONOPIN [Concomitant]
     Active Substance: CLONAZEPAM
     Indication: ANXIETY
     Route: 048
     Dates: start: 2005, end: 2011
  3. NORCO [Concomitant]
     Active Substance: ACETAMINOPHEN\HYDROCODONE BITARTRATE
     Indication: PAIN
     Dosage: UNKNOWN
     Route: 065
  4. NITROGLYCERIN. [Concomitant]
     Active Substance: NITROGLYCERIN
     Indication: CHEST PAIN
     Dosage: 0.4MG AS REQUIRED
     Route: 060
     Dates: start: 2007
  5. LACTULOSE. [Concomitant]
     Active Substance: LACTULOSE
     Indication: CONSTIPATION
     Dosage: 10GM/15ML 4 TABLESPOONS FOUR TIMES DAILY AS REQUIRED
     Route: 048
     Dates: start: 2005, end: 2012
  6. LYRICA [Concomitant]
     Active Substance: PREGABALIN
     Dosage: UNKNOWN
     Route: 065
  7. SERTRALINE [Concomitant]
     Active Substance: SERTRALINE HYDROCHLORIDE
     Indication: ANTIDEPRESSANT THERAPY
     Route: 048
     Dates: start: 2007
  8. MIDOL [Concomitant]
     Active Substance: IBUPROFEN
     Indication: PAIN
     Dosage: 2 PILLS THREE TIMES A DAY
     Route: 048
  9. NEXIUM [Suspect]
     Active Substance: ESOMEPRAZOLE MAGNESIUM
     Indication: GASTROOESOPHAGEAL REFLUX DISEASE
     Route: 048
     Dates: start: 2013
  10. BABY ASPIRIN [Concomitant]
     Active Substance: ASPIRIN
     Indication: CARDIOVASCULAR EVENT PROPHYLAXIS
     Route: 048
     Dates: start: 20131208
  11. LACTULOSE. [Concomitant]
     Active Substance: LACTULOSE
     Indication: BOWEL MOVEMENT IRREGULARITY
     Dosage: 10GM/15ML 4 TABLESPOONS FOUR TIMES DAILY AS REQUIRED
     Route: 048
     Dates: start: 2005, end: 2012
  12. ORPHENADRINE [Concomitant]
     Active Substance: ORPHENADRINE
     Indication: NERVE INJURY
     Route: 048
     Dates: start: 2009
  13. AMITIZA [Concomitant]
     Active Substance: LUBIPROSTONE
     Indication: CONSTIPATION
  14. LINZESS [Suspect]
     Active Substance: LINACLOTIDE
     Indication: IRRITABLE BOWEL SYNDROME
     Route: 048
     Dates: start: 20151108
  15. PRILOSEC [Suspect]
     Active Substance: OMEPRAZOLE MAGNESIUM
     Indication: GASTROOESOPHAGEAL REFLUX DISEASE
     Route: 048
     Dates: start: 2005, end: 2013
  16. MS CONTIN [Concomitant]
     Active Substance: MORPHINE SULFATE
     Indication: PAIN
     Route: 048
     Dates: start: 201506
  17. CREON [Concomitant]
     Active Substance: PANCRELIPASE AMYLASE\PANCRELIPASE LIPASE\PANCRELIPASE PROTEASE
     Indication: CATABOLIC STATE
     Route: 048
     Dates: start: 201406
  18. CELEBREX [Concomitant]
     Active Substance: CELECOXIB
     Indication: PAIN
     Route: 048
     Dates: start: 2009
  19. KLONOPIN [Concomitant]
     Active Substance: CLONAZEPAM
     Indication: ANXIETY
     Route: 048
     Dates: start: 2011
  20. HYDROCODONE [Concomitant]
     Active Substance: HYDROCODONE
     Indication: BREAKTHROUGH PAIN
     Dosage: 10/1000MG AS REQUIRED
     Route: 065
     Dates: end: 2015
  21. DILAUDID [Concomitant]
     Active Substance: HYDROMORPHONE HYDROCHLORIDE
     Indication: BREAKTHROUGH PAIN
     Dosage: 4 MG THREE TIMES DAILY AS NEEDED
     Route: 048
     Dates: start: 201506
  22. COLACE [Concomitant]
     Active Substance: DOCUSATE SODIUM
     Indication: LAXATIVE SUPPORTIVE CARE
     Route: 048
     Dates: start: 2007
  23. CELEBREX [Concomitant]
     Active Substance: CELECOXIB
     Indication: NEURALGIA
     Route: 048
     Dates: start: 2009
  24. NEXIUM [Suspect]
     Active Substance: ESOMEPRAZOLE MAGNESIUM
     Indication: GASTROOESOPHAGEAL REFLUX DISEASE
     Dosage: GENERIC ESOPMEPRAZOLE; 40 MG DAILY
     Route: 048
  25. MOVANTIK [Suspect]
     Active Substance: NALOXEGOL OXALATE
     Indication: CONSTIPATION
     Route: 048
     Dates: start: 20151028
  26. SYNTHROID [Concomitant]
     Active Substance: LEVOTHYROXINE SODIUM
     Indication: HYPERTHYROIDISM
     Route: 048
     Dates: start: 201402
  27. GABAPENTIN. [Concomitant]
     Active Substance: GABAPENTIN
     Indication: NEURALGIA
     Dates: start: 2009
  28. TRAZODONE [Concomitant]
     Active Substance: TRAZODONE HYDROCHLORIDE
     Indication: ANTIDEPRESSANT THERAPY
     Route: 048
     Dates: start: 2007
  29. TRAZODONE [Concomitant]
     Active Substance: TRAZODONE HYDROCHLORIDE
     Indication: SLEEP DISORDER
     Route: 048
     Dates: start: 2007

REACTIONS (33)
  - Visual acuity reduced [Unknown]
  - Scar [Unknown]
  - Lactose intolerance [Unknown]
  - Gluten sensitivity [Unknown]
  - Pancreatic necrosis [Unknown]
  - Neuropathy peripheral [Unknown]
  - Contusion [Unknown]
  - Chest pain [Unknown]
  - Off label use [Recovered/Resolved]
  - Postoperative adhesion [Unknown]
  - Gastric dilatation [Unknown]
  - Weight increased [Unknown]
  - Exposure during pregnancy [Unknown]
  - Pancreatitis [Unknown]
  - Intestinal obstruction [Unknown]
  - Gastrooesophageal sphincter insufficiency [Unknown]
  - Osteoporosis [Unknown]
  - Chronic obstructive pulmonary disease [Unknown]
  - Pain in jaw [Unknown]
  - Malaise [Unknown]
  - Abortion spontaneous [Unknown]
  - Arthritis [Unknown]
  - Emphysema [Unknown]
  - Abdominal pain [Unknown]
  - Infrequent bowel movements [Recovered/Resolved]
  - Diarrhoea [Unknown]
  - Hyperthyroidism [Unknown]
  - Haemorrhage [Unknown]
  - Dermoid cyst [Unknown]
  - Peripheral arterial occlusive disease [Unknown]
  - Diabetes mellitus [Unknown]
  - Back disorder [Unknown]
  - Pain [Not Recovered/Not Resolved]

NARRATIVE: CASE EVENT DATE: 2005
